FAERS Safety Report 5366703-X (Version None)
Quarter: 2007Q2

REPORT INFORMATION
  Report Type: 
  Country: None (occurrence: None)
  Receive Date: 20070622
  Receipt Date: 20060421
  Transmission Date: 20071010
  Serious: No
  Sender: FDA-Public Use
  Company Number: US-ASTRAZENECA-2006UW07189

PATIENT
  Age: 71 Year
  Sex: Female
  Weight: 77.1 kg

DRUGS (2)
  1. RHINOCORT [Suspect]
     Indication: HYPERSENSITIVITY
     Route: 045
     Dates: start: 20060419
  2. ZYRTEC [Concomitant]

REACTIONS (2)
  - DYSPHONIA [None]
  - HYPERSENSITIVITY [None]
